FAERS Safety Report 10044688 (Version 1)
Quarter: 2014Q1

REPORT INFORMATION
  Report Type: Report from Study
  Country: IT (occurrence: IT)
  Receive Date: 20140328
  Receipt Date: 20140328
  Transmission Date: 20141002
  Serious: Yes (Hospitalization)
  Sender: FDA-Public Use
  Company Number: IT-AMGEN-ITANI2014020835

PATIENT
  Age: 59 Year
  Sex: Male

DRUGS (7)
  1. PEGFILGRASTIM [Suspect]
     Indication: NON-HODGKIN^S LYMPHOMA
     Dosage: 6 MG, UNK
     Route: 065
     Dates: start: 20090711
  2. ARA-C [Concomitant]
     Indication: NON-HODGKIN^S LYMPHOMA
     Dosage: 16 MG, Q12H
     Dates: start: 20090708
  3. VP-16 [Concomitant]
     Indication: NON-HODGKIN^S LYMPHOMA
     Dosage: 100 MG, UNK
  4. CARBOPLATIN [Concomitant]
  5. RITUXIMAB [Concomitant]
     Dosage: 375 UNK, UNK
     Dates: start: 20090707
  6. CLEXANE [Concomitant]
     Dosage: 8000 IU, QD
     Route: 058
  7. OXYCONTIN [Concomitant]
     Dosage: 60 MG, Q12H

REACTIONS (1)
  - Febrile neutropenia [Recovered/Resolved]
